FAERS Safety Report 4326171-3 (Version None)
Quarter: 2004Q1

REPORT INFORMATION
  Report Type: 
  Country: None (occurrence: None)
  Receive Date: 20040324
  Receipt Date: 20021113
  Transmission Date: 20041129
  Serious: Yes (Hospitalization)
  Sender: FDA-Public Use
  Company Number: 2002IC000319

PATIENT
  Age: 67 Year
  Sex: Female

DRUGS (10)
  1. FLUOROURACIL [Suspect]
     Indication: RECTAL CANCER
     Dosage: 600 MG; INTRAVENOUS
     Route: 042
     Dates: start: 20011106, end: 20020219
  2. FLUOROURACIL [Suspect]
     Indication: RECTAL CANCER
     Dosage: 750 MG; INTRAVENOUS
     Route: 042
     Dates: start: 20020115, end: 20020212
  3. FLUOROURACIL [Suspect]
     Indication: RECTAL CANCER
     Dosage: 750 MG; INTRAVENOUS
     Route: 042
     Dates: start: 20011106, end: 20020219
  4. FLUOROURACIL [Suspect]
     Indication: RECTAL CANCER
     Dosage: 1000 MG; INTRAVENOUS
     Route: 042
     Dates: start: 20011106, end: 20020219
  5. ISOVORIN [Suspect]
     Indication: RECTAL CANCER
     Dosage: 150 MG; INTRAVENOUS
     Route: 042
     Dates: start: 20011106, end: 20020219
  6. ISOVORIN [Suspect]
     Indication: RECTAL CANCER
     Dosage: 275 MG; INTRAVENOUS
     Route: 042
     Dates: start: 20020115, end: 20020212
  7. ISOVORIN [Suspect]
     Indication: RECTAL CANCER
     Dosage: 275 MG; INTRAVENOUS
     Route: 042
     Dates: start: 20011106, end: 20020219
  8. ISOVORIN [Suspect]
     Indication: RECTAL CANCER
     Dosage: 400 MG; INTRAVENOUS
     Route: 042
     Dates: start: 20011106, end: 20020219
  9. MAGNESIUM OXIDE [Concomitant]
  10. BIOFERMIN [Concomitant]

REACTIONS (12)
  - ALOPECIA [None]
  - BONE MARROW DEPRESSION [None]
  - BOWEL SOUNDS ABNORMAL [None]
  - DIARRHOEA [None]
  - EXANTHEM [None]
  - HYPOKALAEMIA [None]
  - HYPONATRAEMIA [None]
  - MALAISE [None]
  - NAUSEA [None]
  - SUTURE LINE INFECTION [None]
  - VOMITING [None]
  - WEIGHT DECREASED [None]
